FAERS Safety Report 9152953 (Version 1)
Quarter: 2013Q1

REPORT INFORMATION
  Report Type: Spontaneous
  Country: ES (occurrence: ES)
  Receive Date: 20130205
  Receipt Date: 20130205
  Transmission Date: 20140127
  Serious: Yes (Life-Threatening, Hospitalization)
  Sender: FDA-Public Use
  Company Number: ES-BRACCO-000665

PATIENT
  Age: 56 Year
  Sex: Female
  Weight: 80 kg

DRUGS (4)
  1. MULTIHANCE [Suspect]
     Indication: SARCOMA
     Dosage: SPEED 2 ML/S
     Route: 042
     Dates: start: 20121001, end: 20121001
  2. MULTIHANCE [Suspect]
     Indication: NUCLEAR MAGNETIC RESONANCE IMAGING
     Dosage: SPEED 2 ML/S
     Route: 042
     Dates: start: 20121001, end: 20121001
  3. ADIRO [Concomitant]
  4. ATARAX [Concomitant]

REACTIONS (4)
  - Dyspnoea [Recovered/Resolved]
  - Loss of consciousness [Recovered/Resolved]
  - Hyperhidrosis [Recovered/Resolved]
  - Hypotension [Recovered/Resolved]
